FAERS Safety Report 18551763 (Version 1)
Quarter: 2020Q4

REPORT INFORMATION
  Report Type: Spontaneous
  Country: SE (occurrence: SE)
  Receive Date: 20201126
  Receipt Date: 20201126
  Transmission Date: 20210114
  Serious: Yes (Other)
  Sender: FDA-Public Use
  Company Number: NVSC2020SE313632

PATIENT
  Sex: Male

DRUGS (1)
  1. QUETIAPIN 1A FARMA [Suspect]
     Active Substance: QUETIAPINE FUMARATE
     Indication: SCHIZOPHRENIA
     Dosage: UNK
     Route: 065

REACTIONS (5)
  - Hallucination [Unknown]
  - Muscle spasms [Unknown]
  - Vision blurred [Unknown]
  - Cognitive disorder [Unknown]
  - Derealisation [Unknown]
